FAERS Safety Report 6411228-3 (Version None)
Quarter: 2009Q4

REPORT INFORMATION
  Report Type: 
  Country: None (occurrence: None)
  Receive Date: 20091022
  Receipt Date: 20091014
  Transmission Date: 20100525
  Serious: Yes (Hospitalization, Other)
  Sender: FDA-Public Use
  Company Number: CA-GILEAD-2009-0024090

PATIENT
  Sex: Male
  Weight: 60.2 kg

DRUGS (8)
  1. VIREAD [Suspect]
     Indication: HIV INFECTION
     Route: 048
     Dates: start: 20090601, end: 20090618
  2. PREZISTA [Concomitant]
     Indication: HIV INFECTION
     Dates: start: 20070703
  3. RITONAVIR [Concomitant]
     Indication: HIV INFECTION
     Route: 048
     Dates: start: 20070703
  4. TRIZIVIR [Concomitant]
     Indication: HIV INFECTION
     Route: 048
     Dates: start: 20070703
  5. INTELENCE [Concomitant]
     Indication: HIV INFECTION
     Route: 048
     Dates: start: 20070703
  6. RAMIPRIL [Concomitant]
     Indication: HYPERTENSION
     Route: 048
  7. HUMULIN N [Concomitant]
     Indication: TYPE 1 DIABETES MELLITUS
     Route: 058
  8. HUMULIN R [Concomitant]
     Indication: TYPE 1 DIABETES MELLITUS
     Route: 058

REACTIONS (4)
  - BLOOD CREATININE INCREASED [None]
  - BLOOD POTASSIUM INCREASED [None]
  - DRUG DISPENSING ERROR [None]
  - RHABDOMYOLYSIS [None]
